FAERS Safety Report 5845202-2 (Version None)
Quarter: 2008Q3

REPORT INFORMATION
  Report Type: 
  Country: None (occurrence: None)
  Receive Date: 20080814
  Receipt Date: 20080805
  Transmission Date: 20090109
  Serious: Yes (Congenital Anomaly)
  Sender: FDA-Public Use
  Company Number: A0679342A

PATIENT
  Sex: Male

DRUGS (2)
  1. PAROXETINE HCL [Suspect]
     Indication: DEPRESSION
     Dosage: 40MGD PER DAY
     Dates: start: 20060101, end: 20060101
  2. INDERAL [Concomitant]

REACTIONS (5)
  - CARDIAC DISORDER [None]
  - CARDIAC MURMUR [None]
  - CONGENITAL ANOMALY [None]
  - DRUG EXPOSURE DURING PREGNANCY [None]
  - HEART DISEASE CONGENITAL [None]
